FAERS Safety Report 5030058-0 (Version None)
Quarter: 2006Q2

REPORT INFORMATION
  Report Type: 
  Country: None (occurrence: None)
  Receive Date: 20060620
  Receipt Date: 20060531
  Transmission Date: 20061013
  Serious: Yes (Other)
  Sender: FDA-Public Use
  Company Number: AU-BRISTOL-MYERS SQUIBB COMPANY-13395009

PATIENT
  Age: 73 Year
  Sex: Male
  Weight: 38 kg

DRUGS (3)
  1. IRBESARTAN AND HYDROCHLOROTHIAZIDE [Suspect]
     Route: 048
     Dates: start: 20051201, end: 20060317
  2. LIPEX [Concomitant]
     Route: 048
  3. NEXIUM [Concomitant]
     Route: 048

REACTIONS (1)
  - NEUROPATHY PERIPHERAL [None]
